FAERS Safety Report 8493762-8 (Version None)
Quarter: 2012Q3

REPORT INFORMATION
  Report Type: 
  Country: None (occurrence: None)
  Receive Date: 20120706
  Receipt Date: 20120627
  Transmission Date: 20120928
  Serious: Yes (Hospitalization)
  Sender: FDA-Public Use
  Company Number: JP-GILEAD-2011-0046246

PATIENT
  Sex: Female

DRUGS (2)
  1. AMBRISENTAN [Suspect]
     Indication: PULMONARY HYPERTENSION
     Dosage: 10MG PER DAY
     Route: 048
     Dates: start: 20111014, end: 20111022
  2. ADCIRCA [Concomitant]
     Indication: PULMONARY HYPERTENSION
     Dosage: 20MG PER DAY
     Route: 048
     Dates: start: 20111017, end: 20111022

REACTIONS (4)
  - PLEURAL EFFUSION [None]
  - CARDIOMEGALY [None]
  - HYPOXIA [None]
  - LEFT VENTRICULAR FAILURE [None]
